FAERS Safety Report 6437165-6 (Version None)
Quarter: 2009Q4

REPORT INFORMATION
  Report Type: 
  Country: None (occurrence: None)
  Receive Date: 20091112
  Receipt Date: 20091106
  Transmission Date: 20100525
  Serious: Yes (Hospitalization, Congenital Anomaly)
  Sender: FDA-Public Use
  Company Number: DE-WYE-G04713209

PATIENT
  Sex: Male
  Weight: 3.07 kg

DRUGS (6)
  1. VENLAFAXINE HCL [Suspect]
     Indication: DEPRESSION
     Dosage: 375 MG/D FROM AN UNKNOWN DATE UNTIL THE BEGINNING OF PREGNANCY IN EARLY 2009
     Route: 064
  2. VENLAFAXINE HCL [Suspect]
     Dosage: DOSE REDUCTION TO 300 MG/D FROM THE BEGINNING OF PREGNANCY IN EARLY 2009 FOR 4 WEEKS
     Route: 064
  3. VENLAFAXINE HCL [Suspect]
     Dosage: DOSE REDUCTION TO 225 MG/D FOR 4 WEEKS
     Route: 064
  4. VENLAFAXINE HCL [Suspect]
     Dosage: DOSE REDUCTION TO 150 MG/D FOR 4 WEEKS
     Route: 064
  5. VENLAFAXINE HCL [Suspect]
     Dosage: DOSE REDUCTION TO 75 MG/D FOR 4 WEEKS
     Route: 064
  6. VENLAFAXINE HCL [Suspect]
     Dosage: DOSE REDUCTION TO 37.5 MG/D FOR 4 WEEKS, DISCONTINUED DURING 39TH GEST. WEEK
     Route: 064

REACTIONS (10)
  - ANOMALY OF EXTERNAL EAR CONGENITAL [None]
  - BRADYCARDIA NEONATAL [None]
  - CONGENITAL EYE DISORDER [None]
  - CONGENITAL FOOT MALFORMATION [None]
  - CONGENITAL HYPOTHYROIDISM [None]
  - DRUG EXPOSURE DURING PREGNANCY [None]
  - HYPOVENTILATION NEONATAL [None]
  - INFANTILE APNOEIC ATTACK [None]
  - MICROSTOMIA [None]
  - OXYGEN SATURATION DECREASED [None]
